FAERS Safety Report 5645291-4 (Version None)
Quarter: 2008Q1

REPORT INFORMATION
  Report Type: 
  Country: None (occurrence: None)
  Receive Date: 20080229
  Receipt Date: 20080220
  Transmission Date: 20080703
  Serious: Yes (Other)
  Sender: FDA-Public Use
  Company Number: NZ-ROCHE-548492

PATIENT
  Sex: Male

DRUGS (3)
  1. TAMIFLU [Suspect]
     Indication: INFLUENZA
     Route: 048
     Dates: start: 20080218, end: 20080220
  2. IBUPROFEN [Concomitant]
     Indication: INFLUENZA
     Dates: start: 20080218
  3. ACETAMINOPHEN [Concomitant]
     Indication: INFLUENZA
     Dates: start: 20080218

REACTIONS (1)
  - ANXIETY [None]
